FAERS Safety Report 24770603 (Version 1)
Quarter: 2024Q4

REPORT INFORMATION
  Report Type: Spontaneous
  Country: IN (occurrence: IN)
  Receive Date: 20241224
  Receipt Date: 20241224
  Transmission Date: 20250115
  Serious: Yes (Life-Threatening, Hospitalization, Other)
  Sender: RANBAXY
  Company Number: IN-SUN PHARMACEUTICAL INDUSTRIES LTD.-2024R1-486257

PATIENT
  Age: 77 Year
  Sex: Female

DRUGS (6)
  1. FENTANYL [Suspect]
     Active Substance: FENTANYL
     Indication: Analgesic therapy
     Dosage: 100 MICROGRAM
     Route: 042
  2. PROPOFOL [Suspect]
     Active Substance: PROPOFOL
     Indication: Anaesthesia
     Dosage: 75-150 ?G/KG/HR
     Route: 042
  3. VECURONIUM [Suspect]
     Active Substance: VECURONIUM BROMIDE
     Indication: Endotracheal intubation
     Dosage: 6 MILLIGRAM
     Route: 065
  4. ETOMIDATE [Suspect]
     Active Substance: ETOMIDATE
     Indication: Analgesic therapy
     Route: 065
  5. ESMOLOL [Suspect]
     Active Substance: ESMOLOL HYDROCHLORIDE
     Indication: Product used for unknown indication
     Dosage: 35 MILLIGRAM
     Route: 042
  6. LIDOCAINE HYDROCHLORIDE [Suspect]
     Active Substance: LIDOCAINE HYDROCHLORIDE
     Indication: Endotracheal intubation
     Dosage: 60 MILLIGRAM
     Route: 042

REACTIONS (1)
  - Condition aggravated [Unknown]
